FAERS Safety Report 19742413 (Version 1)
Quarter: 2021Q3

REPORT INFORMATION
  Report Type: Spontaneous
  Country: US (occurrence: US)
  Receive Date: 20210820
  Receipt Date: 20210820
  Transmission Date: 20211014
  Serious: Yes (Hospitalization)
  Sender: FDA-Public Use
  Company Number: None

PATIENT
  Age: 62 Year
  Sex: Male

DRUGS (27)
  1. XOLAIR [Suspect]
     Active Substance: OMALIZUMAB
     Indication: ASTHMA
     Route: 058
     Dates: start: 20190914
  2. CARVEDILOL. [Concomitant]
     Active Substance: CARVEDILOL
  3. ROSUVASTATIN. [Concomitant]
     Active Substance: ROSUVASTATIN
  4. ATORVASTATIN [Concomitant]
     Active Substance: ATORVASTATIN
  5. FLUOXETINE [Concomitant]
     Active Substance: FLUOXETINE HYDROCHLORIDE
  6. MECLIZINE [Concomitant]
     Active Substance: MECLIZINE HYDROCHLORIDE
  7. NALTREXONE [Concomitant]
     Active Substance: NALTREXONE
  8. WIXELA INHUB [Concomitant]
     Active Substance: FLUTICASONE PROPIONATE\SALMETEROL XINAFOATE
  9. ALBUTEROL NEB [Concomitant]
     Active Substance: ALBUTEROL
  10. ACAMPRO CAL [Concomitant]
  11. ASPIRIN. [Concomitant]
     Active Substance: ASPIRIN
  12. HYDROXYZ HCL [Concomitant]
     Active Substance: HYDROXYZINE HYDROCHLORIDE
  13. OMEPRAZOLE. [Concomitant]
     Active Substance: OMEPRAZOLE
  14. TAMSULOSIN [Concomitant]
     Active Substance: TAMSULOSIN
  15. XOLAIR [Suspect]
     Active Substance: OMALIZUMAB
     Indication: ASTHMA
     Route: 058
     Dates: start: 20190914
  16. ALENDRONATE [Concomitant]
     Active Substance: ALENDRONATE SODIUM
  17. GABAPENTIN. [Concomitant]
     Active Substance: GABAPENTIN
  18. ISOSORB DIN [Concomitant]
     Active Substance: ISOSORBIDE DINITRATE
  19. LAMOTRIGINE. [Concomitant]
     Active Substance: LAMOTRIGINE
  20. PROAIR HFA [Concomitant]
     Active Substance: ALBUTEROL SULFATE
  21. ARIPIPRAZOLE. [Concomitant]
     Active Substance: ARIPIPRAZOLE
  22. DULOXETINE. [Concomitant]
     Active Substance: DULOXETINE
  23. MONTELUKAST [Concomitant]
     Active Substance: MONTELUKAST SODIUM
  24. FLUTICASONE SPR [Concomitant]
  25. METOPROL TAR [Concomitant]
  26. PREDNISONE. [Concomitant]
     Active Substance: PREDNISONE
  27. TRAZODONE [Concomitant]
     Active Substance: TRAZODONE HYDROCHLORIDE

REACTIONS (1)
  - Cerebrovascular accident [None]

NARRATIVE: CASE EVENT DATE: 20210812
